FAERS Safety Report 8758898 (Version 1)
Quarter: 2012Q4

REPORT INFORMATION
  Report Type: 
  Country: US (occurrence: US)
  Receive Date: 20120829
  Receipt Date: 20120829
  Transmission Date: 20130627
  Serious: No
  Sender: FDA-Public Use
  Company Number: US-PFIZER INC-2012211724

PATIENT
  Age: 51 Year
  Sex: Male
  Weight: 68.03 kg

DRUGS (1)
  1. ATORVASTATIN CALCIUM [Suspect]
     Dosage: UNK
     Dates: start: 201207, end: 201207

REACTIONS (1)
  - Headache [Unknown]
